FAERS Safety Report 8580039-5 (Version None)
Quarter: 2012Q3

REPORT INFORMATION
  Report Type: 
  Country: None (occurrence: None)
  Receive Date: 20120731
  Receipt Date: 20120731
  Transmission Date: 20120928
  Serious: No
  Sender: FDA-Public Use
  Company Number: None

PATIENT
  Age: 57 Year
  Sex: Female
  Weight: 66.2252 kg

DRUGS (1)
  1. PRISTIQ [Suspect]
     Indication: ANXIETY
     Dosage: 50 MG 1 DAY PO
     Route: 048
     Dates: start: 20120505, end: 20120720

REACTIONS (8)
  - INSOMNIA [None]
  - VISION BLURRED [None]
  - DIARRHOEA [None]
  - APHAGIA [None]
  - HEADACHE [None]
  - VOMITING [None]
  - DRUG WITHDRAWAL SYNDROME [None]
  - CHILLS [None]
